FAERS Safety Report 12299193 (Version 2)
Quarter: 2016Q2

REPORT INFORMATION
  Report Type: Report from Study
  Country: AR (occurrence: AR)
  Receive Date: 20160425
  Receipt Date: 20160510
  Transmission Date: 20160815
  Serious: Yes (Hospitalization)
  Sender: FDA-Public Use
  Company Number: PHHY2016AR054258

PATIENT
  Age: 73 Year
  Sex: Female

DRUGS (7)
  1. LEVOTHYROXINE. [Concomitant]
     Active Substance: LEVOTHYROXINE
     Indication: PRODUCT USED FOR UNKNOWN INDICATION
     Dosage: IN THE MORNING
     Route: 065
  2. TRILEPTAL [Suspect]
     Active Substance: OXCARBAZEPINE
     Dosage: 900 MG, QD (600/300, UNITS NOT PROVIDED)
     Route: 065
  3. LIPIDAX [Concomitant]
     Indication: BLOOD TRIGLYCERIDES INCREASED
  4. LIPIDAX [Concomitant]
     Indication: BLOOD CHOLESTEROL INCREASED
     Route: 065
  5. CLONAGIN [Concomitant]
     Indication: SLEEP DISORDER
     Dosage: 2 MG, QD
     Route: 065
  6. LOTRIAL D [Concomitant]
     Indication: BLOOD PRESSURE ABNORMAL
     Dosage: UNK
     Route: 065
  7. TRILEPTAL [Suspect]
     Active Substance: OXCARBAZEPINE
     Indication: EPILEPSY
     Dosage: 1800 MG, QD (MANY YEARS AGO)
     Route: 065

REACTIONS (6)
  - Memory impairment [Unknown]
  - Seizure [Recovered/Resolved]
  - Blood pressure abnormal [Unknown]
  - Blood sodium decreased [Recovered/Resolved]
  - Malaise [Recovered/Resolved]
  - Blood potassium decreased [Recovered/Resolved]

NARRATIVE: CASE EVENT DATE: 2014
